FAERS Safety Report 18186259 (Version 1)
Quarter: 2020Q3

REPORT INFORMATION
  Report Type: Report from Study
  Country: FR (occurrence: FR)
  Receive Date: 20200824
  Receipt Date: 20200824
  Transmission Date: 20201105
  Serious: Yes (Hospitalization, Disabling, Other)
  Sender: FDA-Public Use
  Company Number: ALCN2016FR001255

PATIENT
  Age: 79 Year
  Sex: Female

DRUGS (9)
  1. BROLUCIZUMAB. [Suspect]
     Active Substance: BROLUCIZUMAB
     Indication: NEOVASCULAR AGE-RELATED MACULAR DEGENERATION
     Dosage: UNK
     Route: 031
     Dates: start: 20151209
  2. BROLUCIZUMAB. [Suspect]
     Active Substance: BROLUCIZUMAB
     Dosage: UNK
     Route: 031
     Dates: start: 20160105
  3. OXYBUPROCAINE [Concomitant]
     Active Substance: BENOXINATE
     Indication: PRODUCT USED FOR UNKNOWN INDICATION
     Dosage: UNK
     Route: 047
     Dates: start: 20151201
  4. IODE [Concomitant]
     Active Substance: IODINE
     Indication: PRODUCT USED FOR UNKNOWN INDICATION
     Dosage: UNK
     Route: 047
     Dates: start: 20151209
  5. TRAMADOL. [Concomitant]
     Active Substance: TRAMADOL
     Indication: VARICOSE ULCERATION
     Dosage: UNK
     Route: 003
     Dates: start: 2015
  6. FLUORESCEINE [Concomitant]
     Active Substance: FLUORESCEIN SODIUM
     Indication: PRODUCT USED FOR UNKNOWN INDICATION
     Dosage: UNK
     Route: 047
     Dates: start: 20151201
  7. PREVISCAN [Concomitant]
     Indication: ARRHYTHMIA
     Dosage: UNK
     Route: 048
     Dates: start: 2005
  8. CANDESARTAN. [Concomitant]
     Active Substance: CANDESARTAN
     Indication: ARRHYTHMIA
     Dosage: UNK
     Route: 048
     Dates: start: 2005
  9. TROPICAMIDE. [Concomitant]
     Active Substance: TROPICAMIDE
     Indication: PRODUCT USED FOR UNKNOWN INDICATION
     Dosage: UNK
     Route: 047
     Dates: start: 20151201

REACTIONS (1)
  - Retinal artery thrombosis [Not Recovered/Not Resolved]

NARRATIVE: CASE EVENT DATE: 20160126
